FAERS Safety Report 17790135 (Version 1)
Quarter: 2020Q2

REPORT INFORMATION
  Report Type: Spontaneous
  Country: US (occurrence: US)
  Receive Date: 20200513
  Receipt Date: 20200513
  Transmission Date: 20200714
  Serious: No
  Sender: FDA-Public Use
  Company Number: None

PATIENT
  Age: 67 Year
  Sex: Male
  Weight: 105 kg

DRUGS (1)
  1. OLODATEROL/TIOTROPIUM (OLODATEROL 2.5MCG/TIOTROPIUM 2.5MCG/ACTUAT INHL [Suspect]
     Active Substance: OLODATEROL HYDROCHLORIDE\TIOTROPIUM BROMIDE MONOHYDRATE
     Indication: CHRONIC OBSTRUCTIVE PULMONARY DISEASE
     Dates: start: 20200127, end: 20200416

REACTIONS (1)
  - Dry mouth [None]

NARRATIVE: CASE EVENT DATE: 20200416
